FAERS Safety Report 9749059 (Version 1)
Quarter: 2013Q4

REPORT INFORMATION
  Report Type: Spontaneous
  Country: US (occurrence: US)
  Receive Date: 20131212
  Receipt Date: 20131212
  Transmission Date: 20140711
  Serious: Yes (Other)
  Sender: FDA-Public Use
  Company Number: US-BAYER-2013-149115

PATIENT
  Age: 74 Year
  Sex: Male
  Weight: 77 kg

DRUGS (3)
  1. ALKA-SELTZER PLUS SEVERE SINUSCONGESTIONCOUGH DAY/NIGHT LG COMBI N [Suspect]
     Indication: NASAL CONGESTION
     Dosage: 2 DF, BID
     Route: 048
     Dates: start: 20131203, end: 20131203
  2. ALKA-SELTZER PLUS SEVERE SINUS CONGESTIONCOUGH DAY/NIGHT LG COMBI [Suspect]
     Indication: NASAL CONGESTION
     Dosage: 2 DF, BID
     Route: 048
     Dates: start: 20131203, end: 20131203
  3. TRAMADOL [Concomitant]

REACTIONS (1)
  - Choking [Recovered/Resolved]
